FAERS Safety Report 14937385 (Version 1)
Quarter: 2018Q2

REPORT INFORMATION
  Report Type: Spontaneous
  Country: DK (occurrence: DK)
  Receive Date: 20180525
  Receipt Date: 20180525
  Transmission Date: 20180711
  Serious: Yes (Other)
  Sender: FDA-Public Use
  Company Number: DK-ACCORD-067379

PATIENT
  Sex: Female

DRUGS (1)
  1. FUROSEMIDE ACCORD [Suspect]
     Active Substance: FUROSEMIDE

REACTIONS (2)
  - Scar [Unknown]
  - Accidental exposure to product [Unknown]
